FAERS Safety Report 23614825 (Version 5)
Quarter: 2024Q4

REPORT INFORMATION
  Report Type: Report from Study
  Country: CN (occurrence: CN)
  Receive Date: 20240311
  Receipt Date: 20241112
  Transmission Date: 20250114
  Serious: Yes (Hospitalization)
  Sender: ABBVIE
  Company Number: CN-ABBVIE-5668614

PATIENT
  Age: 27 Year
  Sex: Male
  Weight: 82 kg

DRUGS (13)
  1. RINVOQ [Suspect]
     Active Substance: UPADACITINIB
     Indication: Dermatitis atopic
     Dosage: FORM STRENGTH: 15 MILLIGRAM
     Route: 048
     Dates: start: 20230310, end: 20240301
  2. RINVOQ [Suspect]
     Active Substance: UPADACITINIB
     Indication: Dermatitis atopic
     Dosage: FORM STRENGTH: 15 MILLIGRAM
     Route: 048
     Dates: start: 20240302, end: 20240704
  3. RINVOQ [Suspect]
     Active Substance: UPADACITINIB
     Indication: Dermatitis atopic
     Dosage: 30 MILLIGRAM
     Route: 048
     Dates: start: 20240823, end: 20241031
  4. RINVOQ [Suspect]
     Active Substance: UPADACITINIB
     Indication: Dermatitis atopic
     Dosage: 15 MILLIGRAM
     Route: 048
     Dates: start: 20240705, end: 20240822
  5. RINVOQ [Suspect]
     Active Substance: UPADACITINIB
     Indication: Dermatitis atopic
     Dosage: 15 MILLIGRAM
     Route: 048
     Dates: start: 20241101
  6. DESONIDE [Concomitant]
     Active Substance: DESONIDE
     Indication: Dermatitis atopic
     Dosage: 2 TIMES
     Route: 061
     Dates: start: 20230609
  7. EBASTINE [Concomitant]
     Active Substance: EBASTINE
     Indication: Dermatitis atopic
     Dosage: 20 MILLIGRAM
     Route: 048
     Dates: start: 20230825, end: 20230918
  8. Compound glycyrrhizin [Concomitant]
     Indication: Dermatitis atopic
     Dosage: 100 MILLIGRAM?LAST ADMIN DATE JUL 2023
     Route: 048
     Dates: start: 20230706
  9. TACROLIMUS [Concomitant]
     Active Substance: TACROLIMUS
     Indication: Dermatitis atopic
     Dosage: 2 TIMES 0.1
     Route: 061
     Dates: start: 20221209
  10. .ALPHA.-TOCOPHEROL\ALLANTOIN [Concomitant]
     Active Substance: .ALPHA.-TOCOPHEROL\ALLANTOIN
     Indication: Dermatitis atopic
     Dosage: 2 TIMES?EMOLLIENTS-
     Route: 061
     Dates: start: 20230210
  11. LEVOCETIRIZINE HYDROCHLORIDE [Concomitant]
     Active Substance: LEVOCETIRIZINE HYDROCHLORIDE
     Indication: Dermatitis atopic
     Dosage: 5 MILLIGRAM
     Route: 048
     Dates: start: 20231020
  12. BORIC ACID [Concomitant]
     Active Substance: BORIC ACID
     Indication: Dermatitis atopic
     Dosage: 3%
     Route: 061
     Dates: start: 20240920
  13. SODIUM CHLORIDE [Concomitant]
     Active Substance: SODIUM CHLORIDE
     Indication: Dermatitis atopic
     Dosage: 9%
     Route: 061
     Dates: start: 20240920

REACTIONS (5)
  - Upper limb fracture [Recovered/Resolved]
  - Helicobacter infection [Not Recovered/Not Resolved]
  - Avulsion fracture [Recovered/Resolved]
  - Bronchitis [Recovered/Resolved]
  - Functional gastrointestinal disorder [Recovered/Resolved]

NARRATIVE: CASE EVENT DATE: 20231117
